FAERS Safety Report 13784129 (Version 9)
Quarter: 2018Q1

REPORT INFORMATION
  Report Type: Report from Study
  Country: US (occurrence: US)
  Receive Date: 20170724
  Receipt Date: 20180326
  Transmission Date: 20180508
  Serious: Yes (Hospitalization)
  Sender: FDA-Public Use
  Company Number: US-ACTELION-A-US2017-154981

PATIENT
  Age: 55 Year
  Sex: Female
  Weight: 65.76 kg

DRUGS (8)
  1. MORPHINE SULFATE. [Suspect]
     Active Substance: MORPHINE SULFATE
     Indication: PAIN
  2. OXYCODONE [Concomitant]
     Active Substance: OXYCODONE
     Dosage: 30 MG, Q6HRS
  3. REVATIO [Concomitant]
     Active Substance: SILDENAFIL CITRATE
  4. FLOLAN [Concomitant]
     Active Substance: EPOPROSTENOL SODIUM
  5. VELETRI [Suspect]
     Active Substance: EPOPROSTENOL
     Dosage: 136 NG/KG/MIN
     Route: 042
  6. TRACLEER [Suspect]
     Active Substance: BOSENTAN
     Indication: PULMONARY ARTERIAL HYPERTENSION
     Dosage: 125 MG, BID
     Route: 048
  7. VELETRI [Suspect]
     Active Substance: EPOPROSTENOL
     Indication: PULMONARY ARTERIAL HYPERTENSION
     Dosage: 136 NG/KG/MIN
     Route: 042
  8. MORPHINE SULFATE. [Suspect]
     Active Substance: MORPHINE SULFATE
     Indication: MULTIPLE SCLEROSIS
     Dosage: 120 MG, QD
     Route: 065

REACTIONS (21)
  - Ear disorder [Recovered/Resolved]
  - Head injury [Unknown]
  - Weight increased [Unknown]
  - Dyspnoea [Unknown]
  - Blood pressure fluctuation [Unknown]
  - Fall [Unknown]
  - Skin burning sensation [Unknown]
  - Device leakage [Recovered/Resolved]
  - Mental status changes [Recovered/Resolved]
  - Oedema peripheral [Unknown]
  - Pain in jaw [Unknown]
  - Dyspnoea at rest [Unknown]
  - Fatigue [Unknown]
  - Arrhythmia [Unknown]
  - Cerebral haemorrhage [Unknown]
  - Haematoma [Unknown]
  - Fluid overload [Recovered/Resolved]
  - Pain [Unknown]
  - Ear haemorrhage [Recovered/Resolved]
  - Traumatic haematoma [Unknown]
  - Dyspnoea exertional [Unknown]

NARRATIVE: CASE EVENT DATE: 20180309
